FAERS Safety Report 19017910 (Version 2)
Quarter: 2021Q2

REPORT INFORMATION
  Report Type: Report from Study
  Country: US (occurrence: US)
  Receive Date: 20210317
  Receipt Date: 20210405
  Transmission Date: 20210717
  Serious: Yes (Other)
  Sender: FDA-Public Use
  Company Number: US-GILEAD-2021-0520594

PATIENT
  Age: 77 Year
  Sex: Female
  Weight: 47.17 kg

DRUGS (2)
  1. AZTREONAM LYSINE [Suspect]
     Active Substance: AZTREONAM LYSINE
     Indication: BRONCHIECTASIS
     Dosage: 75 MG, 28 DAYS ON, 28 DAYS OFF
     Route: 065
  2. AZTREONAM LYSINE [Suspect]
     Active Substance: AZTREONAM LYSINE
     Indication: PSEUDOMONAS INFECTION

REACTIONS (4)
  - Intentional product use issue [Not Recovered/Not Resolved]
  - Pneumonia [Not Recovered/Not Resolved]
  - Pseudomonas infection [Unknown]
  - Off label use [Recovered/Resolved]
